FAERS Safety Report 4848022-0 (Version None)
Quarter: 2005Q4

REPORT INFORMATION
  Report Type: 
  Country: None (occurrence: None)
  Receive Date: 20051208
  Receipt Date: 20051123
  Transmission Date: 20060501
  Serious: Yes (Other)
  Sender: FDA-Public Use
  Company Number: PHEH2005US12869

PATIENT
  Age: 72 Year
  Sex: Female

DRUGS (1)
  1. VOLTAREN [Suspect]
     Indication: OSTEOARTHRITIS
     Dosage: UNK, UNK
     Route: 048
     Dates: start: 20050301, end: 20051018

REACTIONS (3)
  - AGGRESSION [None]
  - DELUSION [None]
  - PSYCHOTIC DISORDER [None]
